FAERS Safety Report 11701207 (Version 1)
Quarter: 2015Q4

REPORT INFORMATION
  Report Type: Report from Study
  Country: US (occurrence: US)
  Receive Date: 20151105
  Receipt Date: 20151105
  Transmission Date: 20160304
  Serious: Yes (Other)
  Sender: FDA-Public Use
  Company Number: US-BAXALTA-2015BLT002514

PATIENT
  Sex: Female

DRUGS (1)
  1. IMMUNOGLOBULIN, NORMAL HUMAN [Suspect]
     Active Substance: HUMAN IMMUNOGLOBULIN G
     Indication: IMMUNODEFICIENCY COMMON VARIABLE
     Dosage: UNK UNK, 1X A WEEK
     Route: 065

REACTIONS (6)
  - Fatigue [Unknown]
  - Sinusitis [Unknown]
  - Dyspnoea [Unknown]
  - Fibromyalgia [Unknown]
  - Overgrowth bacterial [Unknown]
  - Gastric disorder [Unknown]
